FAERS Safety Report 7499004-4 (Version None)
Quarter: 2011Q2

REPORT INFORMATION
  Report Type: 
  Country: None (occurrence: None)
  Receive Date: 20110524
  Receipt Date: 20110429
  Transmission Date: 20111010
  Serious: Yes (Death, Other)
  Sender: FDA-Public Use
  Company Number: US-BAYER-200940463NA

PATIENT
  Sex: Female
  Weight: 56.689 kg

DRUGS (21)
  1. GLUCOTROL [Concomitant]
     Indication: PRODUCT USED FOR UNKNOWN INDICATION
     Dosage: 10 MG, UNK
     Route: 048
     Dates: start: 20040921
  2. COREG [Concomitant]
     Indication: PRODUCT USED FOR UNKNOWN INDICATION
     Dosage: 6.125 MG, UNK
     Route: 048
     Dates: start: 20040921
  3. AMIODARONE HCL [Concomitant]
     Dosage: 200 MG, QD
     Route: 048
     Dates: start: 20041108
  4. VISIPAQUE [Concomitant]
     Indication: CATHETERISATION CARDIAC
     Dosage: 150 ML, UNK
     Dates: start: 20010308
  5. CAPTOPRIL [Concomitant]
     Dosage: 50 MG, BID
     Route: 048
  6. ALDACTONE [Concomitant]
     Indication: PRODUCT USED FOR UNKNOWN INDICATION
     Dosage: 25 MG, UNK
     Route: 048
     Dates: start: 20040921
  7. LANOXIN [Concomitant]
     Dosage: 0.25 MG, QD
     Route: 048
  8. TRASYLOL [Suspect]
     Indication: CORONARY ARTERY BYPASS
     Route: 042
  9. VISIPAQUE [Concomitant]
     Indication: ANGIOPLASTY
     Dosage: 320 60 ML, UNK
     Dates: start: 20010517
  10. OMNIPAQUE 140 [Concomitant]
     Indication: CATHETERISATION CARDIAC
     Dosage: 75 ML, UNK
     Dates: start: 20010308
  11. LISINOPRIL [Concomitant]
     Indication: PRODUCT USED FOR UNKNOWN INDICATION
     Dosage: 10 MG, UNK
     Route: 048
     Dates: start: 20040921
  12. ZAROXOLYN [Concomitant]
     Dosage: 5 MG, QD
     Route: 048
  13. NITROGLYCERIN [Concomitant]
     Dosage: 0.4 MG, PRN
     Route: 060
  14. ZESTRIL [Concomitant]
     Dosage: 40 MG, QD
     Route: 048
     Dates: start: 20021211
  15. TRASYLOL [Suspect]
     Indication: HEART VALVE REPLACEMENT
  16. LASIX [Concomitant]
     Indication: PRODUCT USED FOR UNKNOWN INDICATION
     Dosage: 80 MG, UNK
     Route: 048
     Dates: start: 20040921
  17. APRESOLINE [Concomitant]
     Indication: PRODUCT USED FOR UNKNOWN INDICATION
     Dosage: 10 MG, UNK
     Route: 048
     Dates: start: 20040921
  18. PAXIL [Concomitant]
     Indication: PRODUCT USED FOR UNKNOWN INDICATION
     Dosage: 5 MG, UNK
     Route: 048
     Dates: start: 20040921
  19. K-DUR [Concomitant]
     Dosage: 20 MEQ, QD
     Route: 048
  20. ADVIL LIQUI-GELS [Concomitant]
     Dosage: 200 MG, PRN
     Route: 048
  21. DIOVAN [Concomitant]
     Dosage: 40 MG, QD
     Route: 048
     Dates: start: 20041108

REACTIONS (13)
  - RENAL IMPAIRMENT [None]
  - EMOTIONAL DISTRESS [None]
  - DEATH [None]
  - RENAL INJURY [None]
  - STRESS [None]
  - ANHEDONIA [None]
  - MULTI-ORGAN FAILURE [None]
  - RENAL FAILURE [None]
  - INJURY [None]
  - ANXIETY [None]
  - UNEVALUABLE EVENT [None]
  - PAIN [None]
  - FEAR [None]
